FAERS Safety Report 5018459-8 (Version None)
Quarter: 2006Q2

REPORT INFORMATION
  Report Type: 
  Country: None (occurrence: None)
  Receive Date: 20060530
  Receipt Date: 20060512
  Transmission Date: 20061013
  Serious: Yes (Hospitalization)
  Sender: FDA-Public Use
  Company Number: 2006001032

PATIENT
  Age: 71 Year
  Sex: Male

DRUGS (1)
  1. TARCEVA [Suspect]
     Dosage: 150 MG (QD), ORAL
     Route: 048

REACTIONS (2)
  - DYSPNOEA [None]
  - HYPOXIA [None]
